FAERS Safety Report 7264600-6 (Version None)
Quarter: 2011Q1

REPORT INFORMATION
  Report Type: 
  Country: None (occurrence: None)
  Receive Date: 20110131
  Receipt Date: 20110125
  Transmission Date: 20110831
  Serious: No
  Sender: FDA-Public Use
  Company Number: US-PFIZER INC-2011017789

PATIENT
  Sex: Female
  Weight: 38.549 kg

DRUGS (1)
  1. PRISTIQ [Suspect]
     Indication: PANIC ATTACK
     Dosage: 50 MG, 1X/DAY
     Route: 048
     Dates: start: 20110124

REACTIONS (6)
  - PSYCHIATRIC SYMPTOM [None]
  - NERVOUSNESS [None]
  - HOT FLUSH [None]
  - CRYING [None]
  - HEADACHE [None]
  - DEPRESSION [None]
